FAERS Safety Report 6619767-7 (Version None)
Quarter: 2010Q1

REPORT INFORMATION
  Report Type: 
  Country: None (occurrence: None)
  Receive Date: 20100309
  Receipt Date: 20100304
  Transmission Date: 20100710
  Serious: Yes (Death, Hospitalization)
  Sender: FDA-Public Use
  Company Number: JP-BAYER-200914397BYL

PATIENT
  Age: 76 Year
  Sex: Male
  Weight: 60 kg

DRUGS (1)
  1. NEXAVAR [Suspect]
     Indication: RENAL CELL CARCINOMA
     Dosage: TOTAL DAILY DOSE: 800 MG  UNIT DOSE: 200 MG
     Route: 048
     Dates: start: 20081215, end: 20091002

REACTIONS (5)
  - BLOOD AMYLASE INCREASED [None]
  - CONVULSION [None]
  - HYPERTENSION [None]
  - LIPASE INCREASED [None]
  - RENAL CELL CARCINOMA [None]
